FAERS Safety Report 6655814-4 (Version None)
Quarter: 2010Q1

REPORT INFORMATION
  Report Type: 
  Country: None (occurrence: None)
  Receive Date: 20100317
  Receipt Date: 20100105
  Transmission Date: 20100710
  Serious: No
  Sender: FDA-Public Use
  Company Number: DSA_42295_2010

PATIENT
  Sex: Female

DRUGS (8)
  1. XENAZINE [Suspect]
     Indication: HUNTINGTON'S CHOREA
     Dosage: 37.5 MG, 12.5 MG TWO TABLETS IN THE MORNING AND ONE TABLET IN THE EVENING ORAL
     Route: 048
     Dates: start: 20091221
  2. GLIPIZIDE [Concomitant]
  3. METFORMIN [Concomitant]
  4. LEXAPRO [Concomitant]
  5. PEPCID [Concomitant]
  6. ASPIRIN [Concomitant]
  7. FERREX [Concomitant]
  8. MULTIPLE VITAMINS [Concomitant]

REACTIONS (1)
  - SOMNOLENCE [None]
